FAERS Safety Report 14385791 (Version 1)
Quarter: 2018Q1

REPORT INFORMATION
  Report Type: Spontaneous
  Country: US (occurrence: US)
  Receive Date: 20180115
  Receipt Date: 20180115
  Transmission Date: 20180509
  Serious: Yes (Other)
  Sender: FDA-Public Use
  Company Number: US-SA-2017SA055376

PATIENT
  Age: 48 Year
  Sex: Female
  Weight: 113.4 kg

DRUGS (6)
  1. HERCEPTIN [Concomitant]
     Active Substance: TRASTUZUMAB
     Route: 051
  2. CARBOPLATIN. [Concomitant]
     Active Substance: CARBOPLATIN
     Route: 051
  3. TAXOTERE [Suspect]
     Active Substance: DOCETAXEL
     Indication: BREAST CANCER FEMALE
     Route: 051
     Dates: start: 20080520, end: 20080520
  4. TAXOTERE [Suspect]
     Active Substance: DOCETAXEL
     Indication: BREAST CANCER FEMALE
     Route: 051
     Dates: start: 20080902, end: 20080902
  5. HERCEPTIN [Concomitant]
     Active Substance: TRASTUZUMAB
     Route: 051
  6. CARBOPLATIN. [Concomitant]
     Active Substance: CARBOPLATIN
     Route: 051

REACTIONS (6)
  - Pain [Unknown]
  - Emotional distress [Unknown]
  - Psychological trauma [Unknown]
  - Alopecia [Not Recovered/Not Resolved]
  - Anxiety [Unknown]
  - Impaired quality of life [Unknown]

NARRATIVE: CASE EVENT DATE: 200903
